FAERS Safety Report 5299945-2 (Version None)
Quarter: 2007Q2

REPORT INFORMATION
  Report Type: 
  Country: None (occurrence: None)
  Receive Date: 20070417
  Receipt Date: 20070404
  Transmission Date: 20071010
  Serious: Yes (Hospitalization)
  Sender: FDA-Public Use
  Company Number: US-AMGEN-STX218105

PATIENT
  Sex: Female

DRUGS (1)
  1. ENBREL [Suspect]
     Indication: RHEUMATOID ARTHRITIS
     Route: 058
     Dates: start: 19980101

REACTIONS (4)
  - HIP ARTHROPLASTY [None]
  - INJECTION SITE IRRITATION [None]
  - JOINT ARTHROPLASTY [None]
  - KNEE ARTHROPLASTY [None]
